FAERS Safety Report 7832995 (Version 2)
Quarter: 2014Q2

REPORT INFORMATION
  Report Type: Spontaneous
  Country: US (occurrence: US)
  Receive Date: 20110228
  Receipt Date: 20140428
  Transmission Date: 20141212
  Serious: Yes (Other)
  Sender: FDA-Public Use
  Company Number: US-ROCHE-735757

PATIENT
  Age: 31 Year
  Sex: Male
  Weight: 61.2 kg

DRUGS (2)
  1. ACCUTANE [Suspect]
     Indication: ACNE
     Dosage: ACCUTANE 4O MG
     Route: 065
     Dates: start: 19850101, end: 19860107
  2. ACHROMYCIN V [Concomitant]
     Route: 065

REACTIONS (4)
  - Colitis ulcerative [Unknown]
  - Gastrointestinal injury [Unknown]
  - Suicidal ideation [Unknown]
  - Inflammatory bowel disease [Unknown]
